FAERS Safety Report 25118160 (Version 1)
Quarter: 2025Q1

REPORT INFORMATION
  Report Type: Spontaneous
  Country: GB (occurrence: GB)
  Receive Date: 20250325
  Receipt Date: 20250325
  Transmission Date: 20250408
  Serious: Yes (Death)
  Sender: DAIICHI
  Company Number: GB-DAIICHI SANKYO, INC.-DS-2025-129395-GB

PATIENT
  Age: 67 Year
  Sex: Male

DRUGS (1)
  1. QUIZARTINIB [Suspect]
     Active Substance: QUIZARTINIB
     Indication: Product used for unknown indication
     Route: 065

REACTIONS (1)
  - Infection [Fatal]
